FAERS Safety Report 10182422 (Version 1)
Quarter: 2014Q2

REPORT INFORMATION
  Report Type: Spontaneous
  Country: US (occurrence: None)
  Receive Date: 20140519
  Receipt Date: 20140519
  Transmission Date: 20141212
  Serious: No
  Sender: FDA-Public Use
  Company Number: None

PATIENT
  Age: 31 Year
  Sex: Female
  Weight: 77.11 kg

DRUGS (1)
  1. HEPARIN [Suspect]
     Route: 058
     Dates: start: 20140516, end: 20140517

REACTIONS (4)
  - Burning sensation [None]
  - Pain [None]
  - Pain [None]
  - Product substitution issue [None]
